FAERS Safety Report 7991498-0 (Version None)
Quarter: 2011Q4

REPORT INFORMATION
  Report Type: 
  Country: None (occurrence: None)
  Receive Date: 20111219
  Receipt Date: 20111212
  Transmission Date: 20120403
  Serious: Yes (Hospitalization)
  Sender: FDA-Public Use
  Company Number: US-BAYER-2011-036836

PATIENT
  Age: 18 Year
  Sex: Female
  Weight: 56.236 kg

DRUGS (9)
  1. ZODERM [Concomitant]
     Indication: ACNE
     Dosage: UNK
     Dates: start: 20050101, end: 20060101
  2. YASMIN [Suspect]
     Indication: MENSTRUATION IRREGULAR
  3. TRETIN-X [Concomitant]
     Indication: ACNE
     Dosage: 0.025 %, UNK
     Dates: start: 20070405
  4. YASMIN [Suspect]
     Indication: ACNE
     Dosage: UNK
     Dates: start: 20070504, end: 20070524
  5. DUAC [Concomitant]
     Indication: ACNE
  6. DICLOFENAC [Concomitant]
     Dosage: 75 MG, UNK
     Dates: start: 20070523
  7. LEVAQUIN [Concomitant]
     Indication: COUGH
     Dosage: UNK
     Dates: start: 20070503, end: 20070504
  8. ZODERM [Concomitant]
     Dosage: UNK, OW
     Dates: start: 20070101
  9. PROMETHAZINE W/ CODEINE [Concomitant]
     Indication: COUGH
     Dosage: UNK
     Dates: start: 20070503, end: 20070504

REACTIONS (3)
  - OEDEMA PERIPHERAL [None]
  - DEEP VEIN THROMBOSIS [None]
  - VASCULAR COMPRESSION [None]
